FAERS Safety Report 24107347 (Version 1)
Quarter: 2024Q3

REPORT INFORMATION
  Report Type: Spontaneous
  Country: CN (occurrence: CN)
  Receive Date: 20240718
  Receipt Date: 20240718
  Transmission Date: 20241016
  Serious: Yes (Other)
  Sender: GALDERMA
  Company Number: CN-GALDERMA-CN2024011215

PATIENT

DRUGS (2)
  1. BENZOYL PEROXIDE [Suspect]
     Active Substance: BENZOYL PEROXIDE
     Indication: Acne
     Dosage: 0.1 GRAM, BID
     Route: 061
     Dates: start: 20240627, end: 20240701
  2. ADAPALENE [Concomitant]
     Active Substance: ADAPALENE
     Indication: Acne
     Dosage: 0.1 GRAM, QD
     Route: 061
     Dates: start: 20240627, end: 20240701

REACTIONS (7)
  - Skin infection [Unknown]
  - Rash pustular [Recovering/Resolving]
  - Erythema [Recovering/Resolving]
  - Swelling face [Recovering/Resolving]
  - Pruritus [Unknown]
  - Dermatitis contact [Unknown]
  - Drug ineffective [Unknown]

NARRATIVE: CASE EVENT DATE: 20240627
